FAERS Safety Report 7084018-9 (Version None)
Quarter: 2010Q4

REPORT INFORMATION
  Report Type: 
  Country: None (occurrence: None)
  Receive Date: 20101104
  Receipt Date: 20101101
  Transmission Date: 20110411
  Serious: Yes (Hospitalization, Other)
  Sender: FDA-Public Use
  Company Number: US-ROXANE LABORATORIES, INC.-2010-RO-01444RO

PATIENT
  Age: 68 Year
  Sex: Female

DRUGS (2)
  1. MERCAPTOPURINE [Suspect]
     Indication: COLITIS ULCERATIVE
  2. PREDNISONE [Suspect]
     Indication: COLITIS

REACTIONS (2)
  - COLITIS [None]
  - LEUKOCYTOCLASTIC VASCULITIS [None]
